FAERS Safety Report 24180359 (Version 1)
Quarter: 2024Q3

REPORT INFORMATION
  Report Type: Spontaneous
  Country: US (occurrence: None)
  Receive Date: 20240805
  Receipt Date: 20240805
  Transmission Date: 20241016
  Serious: No
  Sender: Public
  Company Number: None

PATIENT
  Age: 38 Year
  Sex: Female

DRUGS (11)
  1. TEZSPIRE [Suspect]
     Active Substance: TEZEPELUMAB-EKKO
     Indication: Asthma
     Dosage: FREQUENCY : MONTHLY;?
     Route: 058
  2. VITAMIN D [Concomitant]
     Active Substance: VITAMIN D NOS
  3. VITAMIN C [Concomitant]
     Active Substance: ASCORBIC ACID
  4. SUCRALFATE [Concomitant]
     Active Substance: SUCRALFATE
  5. PREDNISONE [Concomitant]
     Active Substance: PREDNISONE
  6. MUCINEX 600MG ER TABLETS [Concomitant]
  7. DUONEB INHALATION SOLUTION 3ML [Concomitant]
  8. DEXILANT 30MG CAP(FORMERLY KAPIDEX) [Concomitant]
  9. BREO ELLIPTA 200-25MCG ORAL INH(30) [Concomitant]
  10. ALBUTEROL HFA INH (200 PUFFS) 8.5GM [Concomitant]
  11. ALBUTEROL 0.021%(0.63MG/3ML) 25X3ML [Concomitant]

REACTIONS (3)
  - Injection site vesicles [None]
  - Injection site swelling [None]
  - Injection site erythema [None]

NARRATIVE: CASE EVENT DATE: 20240805
